FAERS Safety Report 4637999-4 (Version None)
Quarter: 2005Q2

REPORT INFORMATION
  Report Type: 
  Country: None (occurrence: None)
  Receive Date: 20050415
  Receipt Date: 20050408
  Transmission Date: 20051028
  Serious: No
  Sender: FDA-Public Use
  Company Number: 2005-127243-NL

PATIENT
  Age: 35 Year
  Sex: Male

DRUGS (6)
  1. MIRTAZAPINE [Suspect]
     Indication: ANXIETY
     Dosage: DF
  2. MIRTAZAPINE [Suspect]
     Indication: DEPRESSION
     Dosage: DF
  3. VENLAFAXINE HCL [Suspect]
     Indication: ANXIETY
     Dosage: 75 MG
  4. VENLAFAXINE HCL [Suspect]
     Indication: DEPRESSION
     Dosage: 75 MG
  5. SERTRALINE HCL [Suspect]
     Indication: ANXIETY
     Dosage: DF
  6. SERTRALINE HCL [Suspect]
     Indication: DEPRESSION
     Dosage: DF

REACTIONS (7)
  - ANGLE CLOSURE GLAUCOMA [None]
  - ASTIGMATISM [None]
  - EFFUSION [None]
  - FLAT ANTERIOR CHAMBER OF EYE [None]
  - HYPERMETROPIA [None]
  - MYOPIA [None]
  - REFUSAL OF TREATMENT BY PATIENT [None]
